FAERS Safety Report 8484826-3 (Version None)
Quarter: 2012Q3

REPORT INFORMATION
  Report Type: 
  Country: None (occurrence: None)
  Receive Date: 20120703
  Receipt Date: 20120629
  Transmission Date: 20120928
  Serious: Yes (Other)
  Sender: FDA-Public Use
  Company Number: US-PFIZER INC-2010036436

PATIENT
  Sex: Female
  Weight: 95.238 kg

DRUGS (6)
  1. FISH OIL [Concomitant]
     Indication: BLOOD CHOLESTEROL ABNORMAL
     Dosage: UNK
  2. TEGRETOL [Concomitant]
     Indication: GRAND MAL CONVULSION
     Dosage: 200 MG, 2X/DAY
  3. SUTENT [Suspect]
     Indication: RENAL CELL CARCINOMA
     Dosage: 50 MG, 1X/DAY, FOR 4 WEEKS EVERY 6 WEEKS
     Route: 048
     Dates: start: 20090601
  4. SUTENT [Suspect]
     Indication: RENAL CANCER METASTATIC
     Dosage: 50 MG, DAILY
     Route: 048
     Dates: end: 20120401
  5. ACETAMINOPHEN [Concomitant]
     Indication: PAIN
     Dosage: UNK, AS NEEDED
  6. LOVAZA [Concomitant]
     Indication: BLOOD CHOLESTEROL ABNORMAL
     Dosage: UNK

REACTIONS (15)
  - GINGIVITIS [None]
  - NODULE [None]
  - STOMATITIS [None]
  - EAR PAIN [None]
  - DISEASE PROGRESSION [None]
  - RENAL CELL CARCINOMA [None]
  - ANIMAL BITE [None]
  - HEARING IMPAIRED [None]
  - DIARRHOEA [None]
  - FOLLICULITIS [None]
  - INFECTION [None]
  - ORAL INFECTION [None]
  - FURUNCLE [None]
  - HAIR COLOUR CHANGES [None]
  - BRONCHITIS [None]
